FAERS Safety Report 20762425 (Version 1)
Quarter: 2022Q2

REPORT INFORMATION
  Report Type: Spontaneous
  Country: US (occurrence: None)
  Receive Date: 20220427
  Receipt Date: 20220427
  Transmission Date: 20220721
  Serious: No
  Sender: FDA-Public Use
  Company Number: None

PATIENT
  Sex: Female

DRUGS (2)
  1. HUMIRA [Suspect]
     Active Substance: ADALIMUMAB
     Indication: Psoriatic arthropathy
     Dosage: FREQUENCY: EVERY OTHER WEEK?
     Route: 058
     Dates: start: 202201
  2. METHOTREXATE [Concomitant]

REACTIONS (9)
  - Psoriatic arthropathy [None]
  - Anxiety [None]
  - Depression [None]
  - Muscle spasms [None]
  - Drug interaction [None]
  - Malaise [None]
  - Thrombosis [None]
  - Arthralgia [None]
  - Arthralgia [None]
